FAERS Safety Report 13572008 (Version 1)
Quarter: 2017Q2

REPORT INFORMATION
  Report Type: Spontaneous
  Country: US (occurrence: US)
  Receive Date: 20170523
  Receipt Date: 20170523
  Transmission Date: 20170830
  Serious: No
  Sender: FDA-Public Use
  Company Number: US-ACCORD-041066

PATIENT
  Age: 39 Year
  Sex: Male
  Weight: 77.27 kg

DRUGS (1)
  1. QUETIAPINE ACCORD [Suspect]
     Active Substance: QUETIAPINE
     Indication: SCHIZOPHRENIA
     Dosage: STRENGTH: 300 MG
     Dates: start: 20160320

REACTIONS (1)
  - Drug ineffective [Unknown]
